FAERS Safety Report 6089577-0 (Version None)
Quarter: 2009Q1

REPORT INFORMATION
  Report Type: 
  Country: None (occurrence: None)
  Receive Date: 20090224
  Receipt Date: 20090220
  Transmission Date: 20090719
  Serious: Yes (Hospitalization)
  Sender: FDA-Public Use
  Company Number: AU-AMGEN-US212670

PATIENT
  Sex: Female

DRUGS (4)
  1. PANITUMUMAB [Suspect]
     Indication: COLORECTAL CANCER
     Route: 042
     Dates: start: 20070110
  2. FLUOROURACIL [Suspect]
     Route: 042
  3. LEUCOVORIN CALCIUM [Suspect]
     Route: 042
  4. IRINOTECAN HCL [Suspect]
     Route: 042

REACTIONS (1)
  - SMALL INTESTINAL OBSTRUCTION [None]
